FAERS Safety Report 12485621 (Version 4)
Quarter: 2016Q3

REPORT INFORMATION
  Report Type: Report from Study
  Country: US (occurrence: US)
  Receive Date: 20160621
  Receipt Date: 20160729
  Transmission Date: 20161109
  Serious: No
  Sender: FDA-Public Use
  Company Number: PHEH2016US015406

PATIENT
  Sex: Male
  Weight: 51 kg

DRUGS (2)
  1. SANDOSTATIN LAR DEPOT [Suspect]
     Active Substance: OCTREOTIDE ACETATE
     Dosage: 40 MG, QMO (Q 28 DAYS)
     Route: 030
     Dates: end: 20160620
  2. SANDOSTATIN LAR DEPOT [Suspect]
     Active Substance: OCTREOTIDE ACETATE
     Indication: CARCINOID TUMOUR
     Dosage: 20 MG, UNK (20 MG X 2)
     Route: 030

REACTIONS (2)
  - Needle issue [Unknown]
  - Scar [Not Recovered/Not Resolved]
